FAERS Safety Report 11731789 (Version 1)
Quarter: 2015Q4

REPORT INFORMATION
  Report Type: Spontaneous
  Country: US (occurrence: US)
  Receive Date: 20151110
  Receipt Date: 20151110
  Transmission Date: 20160304
  Serious: No
  Sender: FDA-Public Use
  Company Number: US-ELI_LILLY_AND_COMPANY-US201109004434

PATIENT
  Age: 82 Year
  Sex: Female

DRUGS (4)
  1. FORTEO [Suspect]
     Active Substance: TERIPARATIDE
     Dosage: 20 UG, QD
     Route: 065
  2. FORTEO [Suspect]
     Active Substance: TERIPARATIDE
     Indication: OSTEOPOROSIS
     Dosage: 20 UG, QD
     Route: 065
     Dates: start: 201107
  3. FORTEO [Suspect]
     Active Substance: TERIPARATIDE
     Dosage: 20 UG, QD
  4. RITUXAN [Concomitant]
     Active Substance: RITUXIMAB
     Dosage: UNK, OTHER

REACTIONS (6)
  - Tooth disorder [Unknown]
  - Weight increased [Recovering/Resolving]
  - Toothache [Unknown]
  - Malaise [Unknown]
  - Tooth fracture [Unknown]
  - Device failure [Unknown]

NARRATIVE: CASE EVENT DATE: 20120317
